FAERS Safety Report 8577399-8 (Version None)
Quarter: 2012Q3

REPORT INFORMATION
  Report Type: 
  Country: None (occurrence: None)
  Receive Date: 20120807
  Receipt Date: 20120726
  Transmission Date: 20120928
  Serious: Yes (Hospitalization, Disabling, Other)
  Sender: FDA-Public Use
  Company Number: DE-CELGENEUS-062-21880-11040169

PATIENT
  Age: 55 Year
  Sex: Male
  Weight: 76 kg

DRUGS (11)
  1. DEXAMETHASONE [Suspect]
     Dosage: 40 MILLIGRAM
     Route: 048
     Dates: start: 20110422
  2. ADRIAMYCIN PFS [Suspect]
     Dosage: 9 MILLIGRAM/SQ. METER
     Route: 041
     Dates: start: 20110422
  3. METOPROLOL TARTRATE [Concomitant]
     Indication: ATRIAL FIBRILLATION
     Dosage: 47.5 MILLIGRAM
     Route: 048
     Dates: start: 20110303, end: 20110324
  4. REVLIMID [Suspect]
     Dosage: 25 MILLIGRAM
     Route: 048
     Dates: start: 20110422
  5. ADRIAMYCIN PFS [Suspect]
     Indication: MULTIPLE MYELOMA
     Dosage: 204 MG
     Route: 041
     Dates: start: 20110128
  6. LEVOTHYROXINE SODIUM [Concomitant]
     Indication: HYPOTHYROIDISM
     Dosage: 100 MICROGRAM
     Route: 048
  7. REVLIMID [Suspect]
     Indication: MULTIPLE MYELOMA
     Dosage: 25 MILLIGRAM
     Route: 048
     Dates: start: 20110128
  8. DEXAMETHASONE [Suspect]
     Indication: MULTIPLE MYELOMA
     Dosage: 40 MILLIGRAM
     Route: 048
     Dates: start: 20110128
  9. FLECAINIDE ACETATE [Concomitant]
     Indication: ATRIAL FIBRILLATION
     Dosage: 300 MILLIGRAM
     Route: 048
     Dates: start: 20110303, end: 20110324
  10. AMLODIPINE [Concomitant]
     Dosage: 5 MILLIGRAM
     Route: 048
  11. COTRIM [Concomitant]
     Indication: PROPHYLAXIS
     Dosage: 960 MILLIGRAM
     Route: 048

REACTIONS (1)
  - CARDIAC OUTPUT DECREASED [None]
